FAERS Safety Report 5122164-7 (Version None)
Quarter: 2006Q4

REPORT INFORMATION
  Report Type: 
  Country: None (occurrence: None)
  Receive Date: 20061002
  Receipt Date: 20060920
  Transmission Date: 20070319
  Serious: Yes (Death)
  Sender: FDA-Public Use
  Company Number: HQWYE972221SEP06

PATIENT
  Age: 79 Year
  Sex: Female
  Weight: 52.66 kg

DRUGS (6)
  1. PHENERGAN [Suspect]
     Indication: VOMITING
     Dates: start: 20060801, end: 20060801
  2. PHENERGAN [Suspect]
     Indication: VOMITING
     Dates: start: 20060801, end: 20060801
  3. UNSPECIFIED ANTIBIOTIC (UNSPECIFIED ANTIBIOTIC) [Concomitant]
  4. LASIX [Concomitant]
  5. ALBUTEROL [Concomitant]
  6. UNSPECIFIED ANTIDEPRESSANT (UNSPECIFIED ANTIDEPRESSANT) [Concomitant]

REACTIONS (1)
  - ACUTE RESPIRATORY DISTRESS SYNDROME [None]
